FAERS Safety Report 20434353 (Version 2)
Quarter: 2022Q1

REPORT INFORMATION
  Report Type: Report from Study
  Country: AR (occurrence: AR)
  Receive Date: 20220206
  Receipt Date: 20220212
  Transmission Date: 20220424
  Serious: Yes (Death, Hospitalization, Other)
  Sender: FDA-Public Use
  Company Number: AR-NOVARTISPH-NVSC2022AR025556

PATIENT
  Sex: Female

DRUGS (1)
  1. EXFORGE [Suspect]
     Active Substance: AMLODIPINE BESYLATE\VALSARTAN
     Indication: Hypertension
     Dosage: 1 DOSAGE FORM, QD
     Route: 065

REACTIONS (5)
  - COVID-19 [Fatal]
  - Pneumonia bacterial [Fatal]
  - Renal disorder [Fatal]
  - Intestinal obstruction [Unknown]
  - Neoplasm [Unknown]
